FAERS Safety Report 15841612 (Version 1)
Quarter: 2019Q1

REPORT INFORMATION
  Report Type: Spontaneous
  Country: DE (occurrence: DE)
  Receive Date: 20190118
  Receipt Date: 20190118
  Transmission Date: 20190417
  Serious: Yes (Death, Hospitalization)
  Sender: FDA-Public Use
  Company Number: DE-ROCHE-2244459

PATIENT
  Age: 60 Year
  Sex: Female

DRUGS (6)
  1. MYCOPHENOLATE MOFETIL. [Suspect]
     Active Substance: MYCOPHENOLATE MOFETIL
     Indication: IMMUNOSUPPRESSANT DRUG THERAPY
     Route: 065
  2. COTRIMOXAZOLE [Suspect]
     Active Substance: SULFAMETHOXAZOLE\TRIMETHOPRIM
     Indication: INFECTION PROPHYLAXIS
     Route: 065
  3. EVEROLIMUS. [Suspect]
     Active Substance: EVEROLIMUS
     Indication: IMMUNOSUPPRESSANT DRUG THERAPY
     Route: 065
  4. ITRACONAZOLE. [Suspect]
     Active Substance: ITRACONAZOLE
     Indication: INFECTION PROPHYLAXIS
     Route: 065
  5. TACROLIMUS. [Suspect]
     Active Substance: TACROLIMUS
     Indication: IMMUNOSUPPRESSANT DRUG THERAPY
     Route: 065
  6. PREDNISOLONE. [Suspect]
     Active Substance: PREDNISOLONE
     Indication: IMMUNOSUPPRESSANT DRUG THERAPY
     Route: 065

REACTIONS (19)
  - Cerebral infarction [Unknown]
  - Subarachnoid haemorrhage [Unknown]
  - Klebsiella test positive [Unknown]
  - Septic shock [Unknown]
  - Liver disorder [Unknown]
  - Diarrhoea [Unknown]
  - Loss of consciousness [Unknown]
  - Multiple organ dysfunction syndrome [Unknown]
  - Fatigue [Unknown]
  - Gastrointestinal infection [Unknown]
  - Coma [Not Recovered/Not Resolved]
  - Herpes zoster disseminated [Recovering/Resolving]
  - Respiratory failure [Fatal]
  - Pain [Unknown]
  - Encephalitis [Unknown]
  - Sepsis [Unknown]
  - Hypokalaemia [Not Recovered/Not Resolved]
  - General physical health deterioration [Unknown]
  - Hyponatraemia [Not Recovered/Not Resolved]
